FAERS Safety Report 22289503 (Version 1)
Quarter: 2023Q2

REPORT INFORMATION
  Report Type: Spontaneous
  Country: US (occurrence: None)
  Receive Date: 20230504
  Receipt Date: 20230504
  Transmission Date: 20230722
  Serious: No
  Sender: FDA-Public Use
  Company Number: None

PATIENT
  Age: 76 Year

DRUGS (2)
  1. ASPIRIN 81MG [Suspect]
     Active Substance: ASPIRIN
     Dates: start: 20230428, end: 20230428
  2. Aspirin 81mg x 4 tablets once [Concomitant]
     Dates: start: 20230428, end: 20230428

REACTIONS (5)
  - Incorrect route of product administration [None]
  - Product preparation issue [None]
  - Device use error [None]
  - Incorrect dose administered [None]
  - Incorrect route of product administration [None]

NARRATIVE: CASE EVENT DATE: 20230428
